FAERS Safety Report 17477760 (Version 1)
Quarter: 2020Q1

REPORT INFORMATION
  Report Type: Spontaneous
  Country: GB (occurrence: GB)
  Receive Date: 20200228
  Receipt Date: 20200228
  Transmission Date: 20200409
  Serious: Yes (Disabling)
  Sender: FDA-Public Use
  Company Number: GB-AMGEN-GBRSP2020031925

PATIENT
  Age: 70 Year
  Sex: Female

DRUGS (1)
  1. AMGEVITA [Suspect]
     Active Substance: ADALIMUMAB
     Indication: RHEUMATOID ARTHRITIS
     Dosage: 40 MILLIGRAM, Q2WK
     Route: 058
     Dates: start: 20200120, end: 20200121

REACTIONS (5)
  - Fatigue [Unknown]
  - Rash vesicular [Unknown]
  - Rash macular [Recovered/Resolved with Sequelae]
  - Wheezing [Recovered/Resolved]
  - Dyspnoea [Unknown]
